FAERS Safety Report 9407494 (Version 1)
Quarter: 2013Q3

REPORT INFORMATION
  Report Type: Spontaneous
  Country: JP (occurrence: JP)
  Receive Date: 20130718
  Receipt Date: 20130718
  Transmission Date: 20140515
  Serious: Yes (Death)
  Sender: FDA-Public Use
  Company Number: JP-MYLANLABS-2013S1014901

PATIENT
  Age: 8 Decade
  Sex: Female
  Weight: 46 kg

DRUGS (1)
  1. BISOPROLOL [Suspect]
     Indication: TACHYCARDIA
     Route: 048

REACTIONS (4)
  - Bradycardia [Fatal]
  - Cardiac arrest [Fatal]
  - Accidental overdose [Fatal]
  - Drug prescribing error [Fatal]
